FAERS Safety Report 14511270 (Version 1)
Quarter: 2018Q1

REPORT INFORMATION
  Report Type: Spontaneous
  Country: None (occurrence: DE)
  Receive Date: 20180209
  Receipt Date: 20180209
  Transmission Date: 20180509
  Serious: Yes (Hospitalization, Other)
  Sender: FDA-Public Use
  Company Number: DE-MEDAC PHARMA, INC.-2041697

PATIENT
  Age: 43 Year
  Sex: Male

DRUGS (1)
  1. METEX (METHOTREXATE SODIUM) [Suspect]
     Active Substance: METHOTREXATE SODIUM
     Indication: PSORIASIS
     Route: 058

REACTIONS (10)
  - Pruritus genital [None]
  - Paraesthesia [Not Recovered/Not Resolved]
  - Loss of libido [Unknown]
  - Pain [None]
  - Pulmonary embolism [None]
  - Connective tissue disorder [Unknown]
  - Cardiac valve rupture [Unknown]
  - Mood swings [Unknown]
  - Pruritus [None]
  - Hyperaesthesia [None]

NARRATIVE: CASE EVENT DATE: 2017
